FAERS Safety Report 6035862-8 (Version None)
Quarter: 2009Q1

REPORT INFORMATION
  Report Type: 
  Country: None (occurrence: None)
  Receive Date: 20090113
  Receipt Date: 20090105
  Transmission Date: 20090719
  Serious: Yes (Hospitalization, Other)
  Sender: FDA-Public Use
  Company Number: NZ-ELI_LILLY_AND_COMPANY-NZ200811006294

PATIENT
  Sex: Male

DRUGS (3)
  1. HUMALOG [Suspect]
     Dosage: 23 IU, EACH MORNING
     Dates: start: 20081112, end: 20081125
  2. HUMALOG [Suspect]
     Dosage: 13 IU, EACH EVENING
     Dates: start: 20081112, end: 20081125
  3. HUMALOG MIX 75/25 [Suspect]

REACTIONS (3)
  - DIABETIC KETOACIDOSIS [None]
  - DRUG DISPENSING ERROR [None]
  - HYPOGLYCAEMIA [None]
